FAERS Safety Report 9768214 (Version 1)
Quarter: 2013Q4

REPORT INFORMATION
  Report Type: Spontaneous
  Country: JP (occurrence: JP)
  Receive Date: 20131217
  Receipt Date: 20131217
  Transmission Date: 20140711
  Serious: Yes (Death)
  Sender: FDA-Public Use
  Company Number: JP-PFIZER INC-2013361303

PATIENT
  Age: 48 Year
  Sex: Male

DRUGS (3)
  1. JZOLOFT [Suspect]
     Dosage: UNK
     Route: 048
  2. DEPAS [Suspect]
     Dosage: UNK
     Route: 048
  3. TOLEDOMIN [Suspect]
     Dosage: UNK
     Route: 048

REACTIONS (2)
  - Cardiac arrest [Fatal]
  - Arrhythmia [Fatal]
